FAERS Safety Report 16843804 (Version 1)
Quarter: 2019Q4

REPORT INFORMATION
  Report Type: Spontaneous
  Country: US (occurrence: US)
  Receive Date: 20190923
  Receipt Date: 20190923
  Transmission Date: 20200122
  Serious: Yes (Other)
  Sender: FDA-Public Use
  Company Number: None

PATIENT
  Age: 30 Year
  Sex: Female
  Weight: 96.75 kg

DRUGS (2)
  1. ALBUTEROL INHALER [Concomitant]
     Active Substance: ALBUTEROL
  2. SERTRALINE HCL 100 MG TABLETS [Suspect]
     Active Substance: SERTRALINE HYDROCHLORIDE
     Indication: OBSESSIVE-COMPULSIVE DISORDER
     Dosage: ?          QUANTITY:1.5 TABLET(S);?
     Route: 048
     Dates: start: 20190904, end: 20190919

REACTIONS (6)
  - Disturbance in attention [None]
  - Headache [None]
  - Loss of personal independence in daily activities [None]
  - Impaired work ability [None]
  - Crying [None]
  - Product substitution issue [None]

NARRATIVE: CASE EVENT DATE: 20190915
